FAERS Safety Report 17967703 (Version 2)
Quarter: 2020Q3

REPORT INFORMATION
  Report Type: Spontaneous
  Country: US (occurrence: US)
  Receive Date: 20200701
  Receipt Date: 20200706
  Transmission Date: 20201103
  Serious: No
  Sender: FDA-Public Use
  Company Number: US-PFIZER INC-2017421527

PATIENT
  Age: 74 Year
  Sex: Male
  Weight: 92 kg

DRUGS (24)
  1. ATENOLOL. [Concomitant]
     Active Substance: ATENOLOL
     Dosage: 25 MG, 2X/DAY
     Route: 048
     Dates: start: 20120124
  2. IRON [Concomitant]
     Active Substance: IRON
     Dosage: 325 MG, DAILY
     Route: 048
     Dates: start: 20170201
  3. LANTUS SOLOSTAR [Concomitant]
     Active Substance: INSULIN GLARGINE
     Dosage: 12 IU, AT BEDTIME
     Route: 058
     Dates: start: 20160915
  4. TRIAMCINOLONE ACETONIDE. [Concomitant]
     Active Substance: TRIAMCINOLONE ACETONIDE
     Dosage: 55 UG DAILY, (INSTILL 2 SQUIRT DAILY)
     Route: 045
     Dates: start: 20151202
  5. BREO ELLIPTA [Concomitant]
     Active Substance: FLUTICASONE FUROATE\VILANTEROL TRIFENATATE
     Dosage: UNK, 1X/DAY (FLUTICASONE FUROATE 100 MCG AND VILANTEROL 25 MCG/INH) (USE 1 INHALATION ONCE DAILY)
     Route: 055
     Dates: start: 20160810
  6. SIMVASTATIN. [Concomitant]
     Active Substance: SIMVASTATIN
     Dosage: 20 MG, DAILY
     Route: 048
     Dates: start: 20120124
  7. LYRICA [Suspect]
     Active Substance: PREGABALIN
     Dosage: 200 MG CAPSULE 3 TIMES DAILY AS NEEDED (QTY: 90 CAPSULE)
     Route: 048
     Dates: start: 20200406
  8. METFORMIN HCL [Concomitant]
     Active Substance: METFORMIN HYDROCHLORIDE
     Dosage: 500 MG, 2X/DAY
     Route: 048
     Dates: start: 20120111
  9. VESICARE [Concomitant]
     Active Substance: SOLIFENACIN SUCCINATE
     Dosage: 10 MG, 1X/DAY (TAKE ONE TABLET BY MOUTH EVERY DAY AT BEDTIME)
     Route: 048
     Dates: start: 20120411
  10. ZYRTEC [Concomitant]
     Active Substance: CETIRIZINE HYDROCHLORIDE
     Dosage: 10 MG, DAILY
     Route: 048
     Dates: start: 20151202
  11. LYRICA [Suspect]
     Active Substance: PREGABALIN
     Indication: DIABETIC NEUROPATHY
     Dosage: 200 MG, 3X/DAY
     Route: 048
     Dates: start: 20130807
  12. FUROSEMIDE. [Concomitant]
     Active Substance: FUROSEMIDE
     Dosage: 20 MG, 1X/DAY (TAKE ONE TABLET BY MOUTH ONCE DAILY AS DIRECTED)
     Route: 048
     Dates: start: 20151111
  13. KLOR?CON M20 [Concomitant]
     Active Substance: POTASSIUM CHLORIDE
     Dosage: 20 MEQ, 1X/DAY
     Route: 048
     Dates: start: 20170109
  14. SOTALOL HCL [Concomitant]
     Active Substance: SOTALOL
     Dosage: 80MG, (TAKE ONE?HALF TABLET BY MOUTH TWICE DAILY)
     Route: 048
     Dates: start: 20120411
  15. LYRICA [Suspect]
     Active Substance: PREGABALIN
     Dosage: 200 MG, 3X/DAY
     Route: 048
  16. WARFARIN SODIUM. [Concomitant]
     Active Substance: WARFARIN SODIUM
     Dosage: 5 MG, DAILY [TAKE ONE TABLET BY MOUTH EVERY DAY FOR TARGET INR BETWEEN 2 AND 3]
     Route: 048
     Dates: start: 20111220
  17. LYRICA [Suspect]
     Active Substance: PREGABALIN
     Indication: NEUROPATHY PERIPHERAL
     Dosage: 200 MG, 3X/DAY
     Route: 048
     Dates: start: 20190328
  18. AMLODIPINE BESYLATE. [Concomitant]
     Active Substance: AMLODIPINE BESYLATE
     Dosage: 5 MG, 1X/DAY
     Route: 048
     Dates: start: 20160307
  19. PROAIR HFA [Concomitant]
     Active Substance: ALBUTEROL SULFATE
     Dosage: UNK, AS NEEDED (INHALE TWO PUFFS EVERY 4 TO 6 HOURS)
     Route: 055
     Dates: start: 20151202
  20. LYRICA [Suspect]
     Active Substance: PREGABALIN
     Indication: POLYMYALGIA RHEUMATICA
     Dosage: 200 MG, 3X/DAY
     Route: 048
  21. LISINOPRIL AND HYDROCHLOROTHIAZIDE [Concomitant]
     Active Substance: HYDROCHLOROTHIAZIDE\LISINOPRIL
     Dosage: UNK, 2X/DAY (LISINOPRIL 20 MG?HYDROCHLOROTHIAZIDE 12.5 MG, TWICE DAILY)
     Route: 048
     Dates: start: 20120124
  22. PREDNISONE. [Concomitant]
     Active Substance: PREDNISONE
     Dosage: 5 MG, DAILY
     Route: 048
     Dates: start: 20170515
  23. WARFARIN SODIUM. [Concomitant]
     Active Substance: WARFARIN SODIUM
     Dosage: 2.5 MG, DAILY
     Route: 048
     Dates: start: 20170317
  24. WARFARIN SODIUM. [Concomitant]
     Active Substance: WARFARIN SODIUM
     Dosage: 2 MG, DAILY
     Route: 048
     Dates: start: 20170623

REACTIONS (2)
  - Hypoacusis [Unknown]
  - Off label use [Unknown]

NARRATIVE: CASE EVENT DATE: 20130807
